FAERS Safety Report 4688485-7 (Version None)
Quarter: 2005Q2

REPORT INFORMATION
  Report Type: 
  Country: None (occurrence: None)
  Receive Date: 20050311
  Receipt Date: 20050311
  Transmission Date: 20051028
  Serious: Yes (Other)
  Sender: FDA-Public Use
  Company Number: None

PATIENT
  Sex: Male
  Weight: 72.5755 kg

DRUGS (2)
  1. TRAMADOL HCL [Suspect]
     Indication: ARTHRALGIA
     Dosage: 1 QID
  2. TRAMADOL HCL [Suspect]
     Indication: MARFAN'S SYNDROME
     Dosage: 1 QID

REACTIONS (1)
  - DYSPNOEA [None]
